FAERS Safety Report 10922416 (Version 1)
Quarter: 2015Q1

REPORT INFORMATION
  Report Type: Spontaneous
  Country: SE (occurrence: SE)
  Receive Date: 20150317
  Receipt Date: 20150317
  Transmission Date: 20150721
  Serious: Yes (Other)
  Sender: FDA-Public Use
  Company Number: SE-BAYER-2015-038617

PATIENT
  Age: 45 Year
  Sex: Female
  Weight: 64 kg

DRUGS (2)
  1. CIPRALEX [Concomitant]
     Active Substance: ESCITALOPRAM OXALATE
  2. MIRENA [Suspect]
     Active Substance: LEVONORGESTREL
     Indication: MENORRHAGIA
     Dosage: 20 MCG/24HR, CONT
     Route: 015
     Dates: start: 20141102, end: 20150122

REACTIONS (3)
  - Major depression [Not Recovered/Not Resolved]
  - Psychotic disorder [Not Recovered/Not Resolved]
  - Panic attack [Not Recovered/Not Resolved]

NARRATIVE: CASE EVENT DATE: 20141107
